FAERS Safety Report 10538392 (Version 2)
Quarter: 2014Q4

REPORT INFORMATION
  Report Type: Spontaneous
  Country: JP (occurrence: JP)
  Receive Date: 20141023
  Receipt Date: 20141113
  Transmission Date: 20150529
  Serious: Yes (Death)
  Sender: FDA-Public Use
  Company Number: JP-JNJFOC-20141014167

PATIENT
  Age: 56 Year
  Sex: Female

DRUGS (2)
  1. ABSTRAL [Concomitant]
     Active Substance: FENTANYL CITRATE
     Route: 060
  2. TAPENTA [Suspect]
     Active Substance: TAPENTADOL HYDROCHLORIDE
     Indication: RENAL CANCER
     Route: 048
     Dates: start: 20140926, end: 20140928

REACTIONS (2)
  - Sleep disorder [Recovering/Resolving]
  - General physical health deterioration [Fatal]

NARRATIVE: CASE EVENT DATE: 20140927
